FAERS Safety Report 13644418 (Version 1)
Quarter: 2017Q2

REPORT INFORMATION
  Report Type: Spontaneous
  Country: US (occurrence: US)
  Receive Date: 20170612
  Receipt Date: 20170612
  Transmission Date: 20170830
  Serious: No
  Sender: FDA-Public Use
  Company Number: US-ROCHE-1345125

PATIENT
  Age: 75 Year
  Sex: Female

DRUGS (2)
  1. XELODA [Suspect]
     Active Substance: CAPECITABINE
     Indication: PRODUCT USED FOR UNKNOWN INDICATION
     Dosage: 3 AM, 7 DAYS ON 7 OFF
     Route: 048
     Dates: start: 20140127
  2. XELODA [Suspect]
     Active Substance: CAPECITABINE
     Dosage: 2PM, 7 DAYS ON 7 OFF
     Route: 048
     Dates: start: 20140127

REACTIONS (4)
  - Frequent bowel movements [Unknown]
  - Decreased appetite [Unknown]
  - Nausea [Unknown]
  - Dizziness [Unknown]

NARRATIVE: CASE EVENT DATE: 20140204
